FAERS Safety Report 8618838-3 (Version None)
Quarter: 2012Q3

REPORT INFORMATION
  Report Type: 
  Country: None (occurrence: None)
  Receive Date: 20120824
  Receipt Date: 20120716
  Transmission Date: 20120928
  Serious: No
  Sender: FDA-Public Use
  Company Number: US-009507513-1207USA010939

PATIENT

DRUGS (1)
  1. PROPECIA [Suspect]

REACTIONS (1)
  - ERECTILE DYSFUNCTION [None]
